FAERS Safety Report 7314356-3 (Version None)
Quarter: 2011Q1

REPORT INFORMATION
  Report Type: 
  Country: None (occurrence: None)
  Receive Date: 20110225
  Receipt Date: 20100901
  Transmission Date: 20110831
  Serious: No
  Sender: FDA-Public Use
  Company Number: US-MYLANLABS-2010S1013732

PATIENT
  Age: 18 Year
  Sex: Male
  Weight: 65.77 kg

DRUGS (3)
  1. CLARAVIS [Suspect]
     Indication: ACNE CYSTIC
  2. CLARAVIS [Suspect]
  3. AMNESTEEM [Suspect]
     Indication: ACNE CYSTIC
     Dates: start: 20091001, end: 20100719

REACTIONS (3)
  - BLOOD LACTATE DEHYDROGENASE INCREASED [None]
  - ASPARTATE AMINOTRANSFERASE INCREASED [None]
  - ALANINE AMINOTRANSFERASE INCREASED [None]
